FAERS Safety Report 11761414 (Version 1)
Quarter: 2015Q4

REPORT INFORMATION
  Report Type: Spontaneous
  Country: US (occurrence: US)
  Receive Date: 20151120
  Receipt Date: 20151120
  Transmission Date: 20160304
  Serious: Yes (Other)
  Sender: FDA-Public Use
  Company Number: US-BAXALTA-2015BLT002767

PATIENT
  Age: 60 Year
  Sex: Female
  Weight: 108.39 kg

DRUGS (2)
  1. GAMMAGARD LIQUID [Suspect]
     Active Substance: HUMAN IMMUNOGLOBULIN G
     Indication: OFF LABEL USE
     Dosage: UNK
     Route: 042
     Dates: start: 201508, end: 201508
  2. GAMMAGARD LIQUID [Suspect]
     Active Substance: HUMAN IMMUNOGLOBULIN G
     Indication: POLYMYOSITIS
     Dosage: UNK
     Route: 042

REACTIONS (4)
  - Polymyositis [Unknown]
  - Poor venous access [Unknown]
  - Treatment noncompliance [Unknown]
  - Condition aggravated [Unknown]
